FAERS Safety Report 11176566 (Version 1)
Quarter: 2015Q2

REPORT INFORMATION
  Report Type: Spontaneous
  Country: US (occurrence: None)
  Receive Date: 20150609
  Receipt Date: 20150609
  Transmission Date: 20150821
  Serious: No
  Sender: FDA-Public Use
  Company Number: None

PATIENT
  Age: 54 Year
  Sex: Female

DRUGS (1)
  1. HUMIRA [Suspect]
     Active Substance: ADALIMUMAB
     Indication: CROHN^S DISEASE
     Dosage: 80 MG SQ DAY 1 + 2 AND DAY 15, THEN MAINT DOSING SQ
     Route: 058
     Dates: start: 20150513

REACTIONS (2)
  - Influenza like illness [None]
  - Back pain [None]

NARRATIVE: CASE EVENT DATE: 20150608
